FAERS Safety Report 15296741 (Version 1)
Quarter: 2018Q3

REPORT INFORMATION
  Report Type: Spontaneous
  Country: SI (occurrence: SI)
  Receive Date: 20180820
  Receipt Date: 20180820
  Transmission Date: 20181010
  Serious: Yes (Other)
  Sender: FDA-Public Use
  Company Number: SI-AMGEN-SVNSP2018111984

PATIENT
  Age: 66 Year
  Sex: Female

DRUGS (4)
  1. PLIVIT D3 [Concomitant]
     Active Substance: CHOLECALCIFEROL
     Dosage: 4000 IE/ML,35 DROPS/WEEK
     Route: 048
  2. XGEVA [Suspect]
     Active Substance: DENOSUMAB
     Indication: BREAST CANCER
     Dosage: 120 MG
     Route: 058
  3. AROMASIN [Concomitant]
     Active Substance: EXEMESTANE
     Dosage: 25 MG, QD
     Route: 048
     Dates: start: 20180327
  4. CALCIUM CARBONATE. [Concomitant]
     Active Substance: CALCIUM CARBONATE
     Dosage: 1G; 1 TBL/DAN
     Route: 048
     Dates: start: 20180116

REACTIONS (8)
  - Muscle spasms [Recovered/Resolved]
  - Hypertension [Recovered/Resolved]
  - Paraesthesia oral [Recovered/Resolved]
  - Ear pain [Recovered/Resolved]
  - Headache [Recovered/Resolved]
  - Pain in extremity [Recovered/Resolved]
  - Neck pain [Recovered/Resolved]
  - Lip oedema [Recovering/Resolving]

NARRATIVE: CASE EVENT DATE: 20180801
